FAERS Safety Report 21251374 (Version 1)
Quarter: 2022Q3

REPORT INFORMATION
  Report Type: Spontaneous
  Country: US (occurrence: None)
  Receive Date: 20220825
  Receipt Date: 20220825
  Transmission Date: 20221027
  Serious: Yes (Hospitalization)
  Sender: FDA-Public Use
  Company Number: US-MICRO LABS LIMITED-ML2022-04249

PATIENT
  Age: 56 Year
  Sex: Male

DRUGS (2)
  1. DIPHENHYDRAMINE HYDROCHLORIDE [Suspect]
     Active Substance: DIPHENHYDRAMINE HYDROCHLORIDE
     Indication: Insomnia
     Dosage: FOUR DIPHENHYDRAMINE 25 MG TABLETS NIGHTLY TO SLEEP
  2. DIPHENHYDRAMINE HYDROCHLORIDE [Suspect]
     Active Substance: DIPHENHYDRAMINE HYDROCHLORIDE
     Dosage: INCREASED TO 12 TABLETS THREE TIMES DAILY (DIPHENHYDRAMINE 25 MG TABLETS)

REACTIONS (6)
  - Psychotic disorder [Recovered/Resolved]
  - Akathisia [Unknown]
  - Extrapyramidal disorder [Unknown]
  - Toxicity to various agents [Unknown]
  - Drug abuse [Unknown]
  - Overdose [Unknown]
